FAERS Safety Report 6852405-7 (Version None)
Quarter: 2010Q3

REPORT INFORMATION
  Report Type: 
  Country: None (occurrence: None)
  Receive Date: 20100717
  Receipt Date: 20071114
  Transmission Date: 20110219
  Serious: No
  Sender: FDA-Public Use
  Company Number: US-PFIZER INC-2007097026

PATIENT
  Sex: Female
  Weight: 55.9 kg

DRUGS (4)
  1. CHANTIX [Suspect]
     Indication: SMOKING CESSATION THERAPY
     Dates: start: 20071027
  2. HYDROCHLOROTHIAZIDE [Concomitant]
     Indication: HYPERTENSION
  3. NEXIUM [Concomitant]
     Indication: DYSPEPSIA
  4. TRANXENE [Concomitant]
     Indication: ANXIETY

REACTIONS (1)
  - NAUSEA [None]
